FAERS Safety Report 7051409-1 (Version None)
Quarter: 2010Q4

REPORT INFORMATION
  Report Type: 
  Country: None (occurrence: None)
  Receive Date: 20101019
  Receipt Date: 20101011
  Transmission Date: 20110411
  Serious: Yes (Congenital Anomaly)
  Sender: FDA-Public Use
  Company Number: A0680668A

PATIENT
  Sex: Male

DRUGS (6)
  1. PAXIL [Suspect]
     Indication: PANIC DISORDER
     Dosage: 20MG PER DAY
     Dates: start: 20000601, end: 20010501
  2. PRENATAL VITAMINS [Concomitant]
     Dates: start: 20000601
  3. ZITHROMAX [Concomitant]
     Dates: start: 20000601, end: 20020301
  4. ZOLOFT [Concomitant]
     Dates: start: 20000601, end: 20030301
  5. PROCHLORPERAZINE [Concomitant]
     Dates: start: 20000601
  6. DEPAKOTE [Concomitant]
     Indication: ANXIETY
     Dosage: 500MG PER DAY
     Dates: start: 20000101, end: 20070101

REACTIONS (8)
  - AORTIC STENOSIS [None]
  - ASTHMA [None]
  - CARDIAC MURMUR [None]
  - CHORDEE [None]
  - CONGENITAL CARDIOVASCULAR ANOMALY [None]
  - CONVULSION [None]
  - DRUG EXPOSURE DURING PREGNANCY [None]
  - HYPOSPADIAS [None]
